FAERS Safety Report 21320225 (Version 2)
Quarter: 2022Q4

REPORT INFORMATION
  Report Type: Report from Study
  Country: US (occurrence: US)
  Receive Date: 20220911
  Receipt Date: 20221004
  Transmission Date: 20230112
  Serious: No
  Sender: FDA-Public Use
  Company Number: US-SA-SAC20220908001235

PATIENT
  Age: 55 Year
  Sex: Female

DRUGS (8)
  1. TERIFLUNOMIDE [Suspect]
     Active Substance: TERIFLUNOMIDE
     Indication: Multiple sclerosis
     Dosage: UNK UNK, QD
     Route: 048
     Dates: start: 20220811
  2. SERTRALINE [Concomitant]
     Active Substance: SERTRALINE HYDROCHLORIDE
  3. IRON [Concomitant]
     Active Substance: IRON
  4. DILTIAZEM [Concomitant]
     Active Substance: DILTIAZEM
  5. LORATADINE [Concomitant]
     Active Substance: LORATADINE
  6. FAMOTIDINE [Concomitant]
     Active Substance: FAMOTIDINE
  7. VITAMIN C [Concomitant]
     Active Substance: ASCORBIC ACID
  8. HYDROCHLOROTHIAZIDE [Concomitant]
     Active Substance: HYDROCHLOROTHIAZIDE

REACTIONS (1)
  - Back pain [Not Recovered/Not Resolved]

NARRATIVE: CASE EVENT DATE: 20220907
